FAERS Safety Report 5752593-X (Version None)
Quarter: 2008Q2

REPORT INFORMATION
  Report Type: 
  Country: None (occurrence: None)
  Receive Date: 20080529
  Receipt Date: 20080414
  Transmission Date: 20081010
  Serious: No
  Sender: FDA-Public Use
  Company Number: US-BAYER-200811665BCC

PATIENT
  Age: 80 Year
  Sex: Female
  Weight: 56 kg

DRUGS (5)
  1. ALEVE (CAPLET) [Suspect]
     Indication: PAIN IN EXTREMITY
     Route: 048
     Dates: start: 20080414
  2. ZOCOR [Concomitant]
  3. LOPRESA [Concomitant]
  4. DESYREL [Concomitant]
  5. MIRALAX [Concomitant]

REACTIONS (1)
  - PAIN IN EXTREMITY [None]
